FAERS Safety Report 8559242-6 (Version None)
Quarter: 2012Q3

REPORT INFORMATION
  Report Type: 
  Country: None (occurrence: None)
  Receive Date: 20120802
  Receipt Date: 20120723
  Transmission Date: 20120928
  Serious: Yes (Death, Hospitalization)
  Sender: FDA-Public Use
  Company Number: US-009507513-1207USA009656

PATIENT

DRUGS (11)
  1. NOVOLOG MIX 70/30 [Concomitant]
  2. FUROSEMIDE [Concomitant]
  3. LEVOTHYROXINE SODIUM [Concomitant]
  4. DOMPERIDONE [Concomitant]
  5. DIHYDROERGOTAMINE MESYLATE [Concomitant]
  6. FERROUS FUMARATE [Concomitant]
  7. LOPERAMIDE HCL [Concomitant]
  8. ASPIRIN [Concomitant]
  9. ZOCOR [Suspect]
     Dosage: 20 MG, UNK
     Route: 048
  10. ACETAMINOPHEN AND CODEINE PHOSPHATE [Concomitant]
  11. CYCLOSPORINE [Concomitant]

REACTIONS (4)
  - KIDNEY TRANSPLANT REJECTION [None]
  - RHABDOMYOLYSIS [None]
  - HYPERKALAEMIA [None]
  - TRANSPLANT FAILURE [None]
